FAERS Safety Report 8088030-2 (Version None)
Quarter: 2012Q1

REPORT INFORMATION
  Report Type: 
  Country: None (occurrence: None)
  Receive Date: 20120128
  Receipt Date: 20110524
  Transmission Date: 20120608
  Serious: No
  Sender: FDA-Public Use
  Company Number: US-ABBOTT-11P-163-0728959-00

PATIENT
  Age: 46 Year
  Sex: Male

DRUGS (8)
  1. HUMIRA [Suspect]
     Dates: start: 20110301
  2. CYCLOBENZAPRINE [Concomitant]
     Indication: PRODUCT USED FOR UNKNOWN INDICATION
     Dosage: 10 MG TID PRN
  3. LEVSIN [Concomitant]
     Indication: ABDOMINAL PAIN
     Dosage: 0.125MG BID PRN
  4. LEVSIN [Concomitant]
     Indication: DIARRHOEA
  5. PROMETHAZINE [Concomitant]
     Indication: NAUSEA
     Dosage: 25MG Q6H PRN
  6. HYDROCODONE BITARTRATE [Concomitant]
     Indication: PAIN
     Dosage: 7.5/500MG PER 15ML/ 10ML Q4H
  7. HUMIRA [Suspect]
     Indication: CROHN'S DISEASE
     Dates: start: 20080801, end: 20100729
  8. OXYCODONE HCL [Concomitant]
     Indication: PAIN
     Dosage: 20MG/1ML 1 ML Q4-6H

REACTIONS (4)
  - OEDEMA PERIPHERAL [None]
  - MUSCLE DISORDER [None]
  - PAIN IN EXTREMITY [None]
  - NEPHROLITHIASIS [None]
